FAERS Safety Report 9677812 (Version 1)
Quarter: 2013Q4

REPORT INFORMATION
  Report Type: Spontaneous
  Country: GB (occurrence: GB)
  Receive Date: 20131108
  Receipt Date: 20131108
  Transmission Date: 20140711
  Serious: Yes (Hospitalization)
  Sender: FDA-Public Use
  Company Number: GB-DRREDDYS-GER/UKI/13/0035438

PATIENT
  Age: 42 Year
  Sex: Male

DRUGS (35)
  1. OLANZAPINE [Suspect]
     Indication: SCHIZOAFFECTIVE DISORDER
     Dates: start: 199708
  2. OLANZAPINE [Suspect]
     Dates: start: 19971003
  3. OLANZAPINE [Suspect]
     Dates: start: 19971009
  4. OLANZAPINE [Suspect]
     Dates: start: 199711
  5. OLANZAPINE [Suspect]
     Dates: start: 19971202
  6. OLANZAPINE [Suspect]
     Dates: end: 19971202
  7. OLANZAPINE [Suspect]
     Dates: start: 19971203
  8. OLANZAPINE [Suspect]
     Dates: start: 20030424
  9. OLANZAPINE [Suspect]
     Dates: start: 20030505
  10. OLANZAPINE [Suspect]
     Dates: start: 20030926, end: 20040210
  11. OLANZAPINE [Suspect]
     Dates: start: 20040505
  12. OLANZAPINE [Suspect]
     Dates: end: 200508
  13. OLANZAPINE [Suspect]
     Dates: end: 20051019
  14. OLANZAPINE [Suspect]
     Dates: start: 20051019, end: 200707
  15. ALCOHOL [Concomitant]
     Indication: PRODUCT USED FOR UNKNOWN INDICATION
     Route: 048
     Dates: start: 19971011
  16. ALCOHOL [Concomitant]
     Route: 048
     Dates: start: 19860612
  17. FLUOXETINE [Concomitant]
     Indication: ANHEDONIA
     Route: 048
     Dates: start: 19980505, end: 20000906
  18. FLUOXETINE [Concomitant]
     Dates: start: 20000907
  19. FLUOXETINE [Concomitant]
     Dates: end: 20030403
  20. FLUOXETINE [Concomitant]
     Dates: start: 20030605
  21. FLUOXETINE [Concomitant]
     Dates: end: 20041019
  22. FLUOXETINE [Concomitant]
     Dates: start: 20041020
  23. FLUOXETINE [Concomitant]
     Dates: start: 200906
  24. FLUOXETINE [Concomitant]
     Dates: start: 20120405
  25. FLUOXETINE [Concomitant]
     Dates: start: 20120528
  26. LANSOPRAZOLE [Concomitant]
     Indication: PRODUCT USED FOR UNKNOWN INDICATION
     Dates: start: 19971209
  27. LANSOPRAZOLE [Concomitant]
     Dates: start: 19980505
  28. LITHIUM CARBONATE [Concomitant]
     Indication: PRODUCT USED FOR UNKNOWN INDICATION
     Dates: start: 19971003
  29. LITHIUM CARBONATE [Concomitant]
     Dates: start: 19980204
  30. LITHIUM CARBONATE [Concomitant]
     Dates: start: 1998
  31. LITHIUM CARBONATE [Concomitant]
     Dates: end: 19980204
  32. OMEPRAZOLE [Concomitant]
     Indication: HELICOBACTER TEST POSITIVE
     Dates: start: 19961213, end: 19971009
  33. RISPERIDONE [Concomitant]
     Indication: PRODUCT USED FOR UNKNOWN INDICATION
     Dates: start: 20080819
  34. METFORMIN [Concomitant]
     Indication: PRODUCT USED FOR UNKNOWN INDICATION
     Dates: start: 20080214
  35. SIMVASTATIN [Concomitant]
     Indication: PRODUCT USED FOR UNKNOWN INDICATION

REACTIONS (7)
  - Liver function test abnormal [Recovered/Resolved]
  - Blood cholesterol increased [Unknown]
  - Blood triglycerides increased [Unknown]
  - Diarrhoea haemorrhagic [Unknown]
  - Diabetes mellitus [Not Recovered/Not Resolved]
  - Rectal haemorrhage [Unknown]
  - Weight increased [Unknown]
